FAERS Safety Report 11917806 (Version 1)
Quarter: 2016Q1

REPORT INFORMATION
  Report Type: Spontaneous
  Country: US (occurrence: US)
  Receive Date: 20160114
  Receipt Date: 20160114
  Transmission Date: 20160526
  Serious: No
  Sender: FDA-Public Use
  Company Number: US-BAYER-2016-007562

PATIENT
  Age: 38 Year
  Sex: Female

DRUGS (1)
  1. MIRENA [Suspect]
     Active Substance: LEVONORGESTREL
     Indication: MENORRHAGIA
     Dosage: 20 MCG/24HR, CONT
     Route: 015
     Dates: start: 20150226, end: 20160109

REACTIONS (4)
  - Menorrhagia [Not Recovered/Not Resolved]
  - Menstrual disorder [None]
  - Device expulsion [None]
  - Hypomenorrhoea [None]

NARRATIVE: CASE EVENT DATE: 20160107
